FAERS Safety Report 6240552-2 (Version None)
Quarter: 2009Q2

REPORT INFORMATION
  Report Type: 
  Country: None (occurrence: None)
  Receive Date: 20090623
  Receipt Date: 20080915
  Transmission Date: 20091009
  Serious: No
  Sender: FDA-Public Use
  Company Number: US-ASTRAZENECA-2008UW19097

PATIENT
  Age: 80 Year
  Sex: Female

DRUGS (8)
  1. PULMICORT FLEXHALER [Suspect]
     Indication: ASTHMA
     Dosage: 180 MCG, TWO PUFFS TWICE A DAY
     Route: 055
     Dates: start: 20080913
  2. AMLODIPINE [Concomitant]
  3. FORADIL [Concomitant]
  4. PREVACID [Concomitant]
  5. SINGULAIR [Concomitant]
  6. PREDNISONE TAB [Concomitant]
     Dosage: OCCASIONALLY
  7. PROVENTIL-HFA [Concomitant]
  8. ZOCOR [Concomitant]

REACTIONS (1)
  - DYSPNOEA [None]
